FAERS Safety Report 9379188 (Version 1)
Quarter: 2013Q3

REPORT INFORMATION
  Report Type: Spontaneous
  Country: JP (occurrence: JP)
  Receive Date: 20130702
  Receipt Date: 20130702
  Transmission Date: 20140515
  Serious: Yes (Other)
  Sender: FDA-Public Use
  Company Number: JP-ASTELLAS-2013JP006835

PATIENT
  Age: 81 Year
  Sex: Male

DRUGS (10)
  1. HARNAL [Suspect]
     Dosage: 0.2 MG, UID/QD
     Route: 048
     Dates: end: 20130614
  2. HARNAL [Suspect]
     Dosage: 0.1 MG, UID/QD
     Route: 048
     Dates: start: 20130615
  3. BETANIS [Suspect]
     Dosage: 25 MG, UID/QD
     Route: 048
     Dates: start: 20130517, end: 20130614
  4. BETANIS [Suspect]
     Dosage: 50 MG, UNKNOWN/D
     Route: 048
     Dates: start: 20130515, end: 20130516
  5. FAMOSTAGINE [Concomitant]
     Dosage: 10 MG, UNKNOWN/D
     Route: 048
  6. PLETAAL [Concomitant]
     Dosage: 50 MG, BID
     Route: 048
     Dates: end: 20130614
  7. PLETAAL [Concomitant]
     Dosage: 50 MG, UID/QD
     Route: 048
     Dates: start: 20130615
  8. BLOPRESS [Concomitant]
     Dosage: 4 MG, UNKNOWN/D
     Route: 048
  9. ZYLORIC [Concomitant]
     Indication: BLOOD URIC ACID INCREASED
     Dosage: 50 MG, UID/QD
     Route: 048
     Dates: start: 20130614, end: 20130617
  10. ZYLORIC [Concomitant]
     Dosage: 100 MG, UID/QD
     Route: 048
     Dates: start: 20130618

REACTIONS (3)
  - Blood creatinine increased [Not Recovered/Not Resolved]
  - White blood cell count increased [Not Recovered/Not Resolved]
  - Hepatic function abnormal [Not Recovered/Not Resolved]
